FAERS Safety Report 18808819 (Version 1)
Quarter: 2021Q1

REPORT INFORMATION
  Report Type: Spontaneous
  Country: ES (occurrence: ES)
  Receive Date: 20210129
  Receipt Date: 20210129
  Transmission Date: 20210419
  Serious: Yes (Hospitalization)
  Sender: FDA-Public Use
  Company Number: ES-JNJFOC-20210128208

PATIENT
  Age: 52 Year
  Sex: Male

DRUGS (12)
  1. CLOTIAPINE [Suspect]
     Active Substance: CLOTHIAPINE
     Indication: PRODUCT USED FOR UNKNOWN INDICATION
     Dosage: 40 MG, QD (BEFORE GOING TO BED)
     Route: 065
  2. BIPERIDEN [Suspect]
     Active Substance: BIPERIDEN
     Dosage: 4 MG/DAY
     Route: 065
  3. FLUOXETINA [Suspect]
     Active Substance: FLUOXETINE HYDROCHLORIDE
     Indication: MAJOR DEPRESSION
     Dosage: UP TO 40 MG/ DAY
     Route: 065
  4. HALOPERIDOL. [Suspect]
     Active Substance: HALOPERIDOL
     Indication: SCHIZOPHRENIA
     Dosage: 10 MG, QD
     Route: 065
  5. DIPOTASSIUM CLORAZEPATE [Suspect]
     Active Substance: CLORAZEPATE DIPOTASSIUM
     Dosage: 25 MG, QD
     Route: 065
  6. LORMETAZEPAM [Suspect]
     Active Substance: LORMETAZEPAM
     Indication: HYPNOTHERAPY
     Dosage: 2 MG, QD (BEFORE GOING TO BED)
     Route: 065
  7. LORMETAZEPAM [Suspect]
     Active Substance: LORMETAZEPAM
     Indication: SEDATIVE THERAPY
  8. FLUPHENAZINE DECANOATE. [Suspect]
     Active Substance: FLUPHENAZINE DECANOATE
     Indication: SCHIZOPHRENIA
     Dosage: 25 MG, Q3WEEKS
     Route: 065
  9. DIPOTASSIUM CLORAZEPATE [Suspect]
     Active Substance: CLORAZEPATE DIPOTASSIUM
     Dosage: 15 MG, QD
     Route: 065
  10. DIPOTASSIUM CLORAZEPATE [Suspect]
     Active Substance: CLORAZEPATE DIPOTASSIUM
     Indication: ANXIOLYTIC THERAPY
     Dosage: 45 MG, QD
     Route: 065
  11. BIPERIDEN [Suspect]
     Active Substance: BIPERIDEN
     Indication: SCHIZOPHRENIA
     Dosage: 2 MG, QD
     Route: 065
  12. CLOMIPRAMINE [Suspect]
     Active Substance: CLOMIPRAMINE
     Indication: PRODUCT USED FOR UNKNOWN INDICATION
     Dosage: 37.5 MG, QD
     Route: 065

REACTIONS (12)
  - Decreased appetite [Recovering/Resolving]
  - Stupor [Recovering/Resolving]
  - Social avoidant behaviour [Recovering/Resolving]
  - Insomnia [Recovering/Resolving]
  - Poor personal hygiene [Recovering/Resolving]
  - Musculoskeletal stiffness [Recovering/Resolving]
  - Delusion [Recovering/Resolving]
  - Incontinence [Recovered/Resolved]
  - Illness anxiety disorder [Recovering/Resolving]
  - Akinesia [Recovering/Resolving]
  - Psychomotor skills impaired [Recovering/Resolving]
  - Mutism [Recovering/Resolving]
